FAERS Safety Report 15145755 (Version 2)
Quarter: 2018Q3

REPORT INFORMATION
  Report Type: Spontaneous
  Country: FR (occurrence: FR)
  Receive Date: 20180714
  Receipt Date: 20180725
  Transmission Date: 20181010
  Serious: Yes (Death)
  Sender: FDA-Public Use
  Company Number: FR-TEVA-2018-FR-924894

PATIENT
  Age: 73 Year
  Sex: Male
  Weight: 86 kg

DRUGS (8)
  1. OXALIPLATINE [Suspect]
     Active Substance: OXALIPLATIN
     Indication: COLON CANCER
     Route: 042
     Dates: start: 20170926, end: 20170926
  2. DIFFU K, G?LULE [Concomitant]
     Active Substance: POTASSIUM CHLORIDE
     Dosage: 2 DOSAGE FORMS DAILY;
     Route: 048
  3. SOLUPRED 20 MG, COMPRIM? ORODISPERSIBLE [Concomitant]
     Dosage: 1 DOSAGE FORMS DAILY;
     Route: 048
     Dates: start: 20100921
  4. PARACETAMOL [Concomitant]
     Active Substance: ACETAMINOPHEN
     Dosage: 3 GRAM DAILY;
     Route: 048
     Dates: start: 20170921
  5. FLUOROURACILE [Suspect]
     Active Substance: FLUOROURACIL
     Indication: COLON CANCER
     Route: 042
     Dates: start: 20170926, end: 20170926
  6. ORAMORPH [Concomitant]
     Active Substance: MORPHINE SULFATE
     Dosage: 6 GTT DAILY;
     Route: 048
     Dates: start: 20170921
  7. SERESTA 10 MG, COMPRIM? [Concomitant]
     Active Substance: OXAZEPAM
     Dosage: 1 DOSAGE FORMS DAILY;
     Route: 048
     Dates: start: 20170921
  8. ACIDE FOLINIQUE [Suspect]
     Active Substance: LEUCOVORIN
     Indication: COLON CANCER
     Route: 042
     Dates: start: 20170926, end: 20170926

REACTIONS (4)
  - Decreased appetite [Fatal]
  - General physical health deterioration [Fatal]
  - Hypoxia [Fatal]
  - Asthenia [Fatal]

NARRATIVE: CASE EVENT DATE: 20171008
